FAERS Safety Report 10432276 (Version 1)
Quarter: 2014Q3

REPORT INFORMATION
  Report Type: Spontaneous
  Country: US (occurrence: None)
  Receive Date: 20140904
  Receipt Date: 20140904
  Transmission Date: 20150326
  Serious: Yes (Life-Threatening, Hospitalization, Other)
  Sender: FDA-Public Use
  Company Number: None

PATIENT
  Age: 44 Year
  Sex: Female
  Weight: 74.84 kg

DRUGS (1)
  1. WELLBUTRIN [Suspect]
     Active Substance: BUPROPION HYDROCHLORIDE
     Indication: ANTIDEPRESSANT THERAPY
     Route: 048
     Dates: start: 20140729, end: 20140815

REACTIONS (3)
  - Drug hypersensitivity [None]
  - Investigation [None]
  - Toxicity to various agents [None]

NARRATIVE: CASE EVENT DATE: 20140817
